FAERS Safety Report 4787094-9 (Version None)
Quarter: 2005Q3

REPORT INFORMATION
  Report Type: 
  Country: None (occurrence: None)
  Receive Date: 20050930
  Receipt Date: 20050126
  Transmission Date: 20060218
  Serious: Yes (Life-Threatening)
  Sender: FDA-Public Use
  Company Number: 2005FR-00327

PATIENT
  Sex: Male

DRUGS (11)
  1. METFORMIN [Suspect]
     Dosage: 500 MG BD, ORAL
     Route: 048
  2. SIMVASTATIN [Concomitant]
  3. ASPIRIN [Concomitant]
  4. GALANTAMINE HYDROBROMIDE [Concomitant]
  5. FOLIC ACID [Concomitant]
  6. FERROUS SULPHATE ANHYDROUS [Concomitant]
  7. INSULIN GLARGINE [Concomitant]
  8. TAMSULOSIN [Concomitant]
  9. CITALOPRAM [Concomitant]
  10. DEXAMETHASONE [Concomitant]
  11. PERINDOPRIL [Concomitant]

REACTIONS (1)
  - NEUTROPENIA [None]
